FAERS Safety Report 10744646 (Version 1)
Quarter: 2015Q1

REPORT INFORMATION
  Report Type: Spontaneous
  Country: US (occurrence: US)
  Receive Date: 20150128
  Receipt Date: 20150128
  Transmission Date: 20150721
  Serious: No
  Sender: FDA-Public Use
  Company Number: US-SHIRE-US201500538

PATIENT
  Age: 43 Year
  Sex: Female
  Weight: 104.31 kg

DRUGS (2)
  1. PENTASA [Suspect]
     Active Substance: MESALAMINE
     Indication: COLITIS ULCERATIVE
     Dosage: 3000 MG PER DAY
     Route: 048
     Dates: start: 20141027
  2. PENTASA [Suspect]
     Active Substance: MESALAMINE
     Indication: CROHN^S DISEASE

REACTIONS (2)
  - Chromaturia [Not Recovered/Not Resolved]
  - Gingival swelling [Not Recovered/Not Resolved]
